FAERS Safety Report 17162609 (Version 2)
Quarter: 2019Q4

REPORT INFORMATION
  Report Type: Report from Study
  Country: US (occurrence: US)
  Receive Date: 20191217
  Receipt Date: 20191231
  Transmission Date: 20200122
  Serious: Yes (Hospitalization, Other)
  Sender: FDA-Public Use
  Company Number: US-GILEAD-2019-0442834

PATIENT
  Age: 59 Year
  Sex: Female
  Weight: 100.68 kg

DRUGS (31)
  1. FLUTICASONE PROPIONATE. [Concomitant]
     Active Substance: FLUTICASONE PROPIONATE
  2. JARDIANCE [Concomitant]
     Active Substance: EMPAGLIFLOZIN
  3. NYAMYC [Concomitant]
     Active Substance: NYSTATIN
  4. TRIAMCINOLONE [Concomitant]
     Active Substance: TRIAMCINOLONE
  5. VITAMIN D3 [Concomitant]
     Active Substance: CHOLECALCIFEROL
  6. ELIQUIS [Concomitant]
     Active Substance: APIXABAN
  7. FUROSEMIDE. [Concomitant]
     Active Substance: FUROSEMIDE
  8. SUCRALFATE. [Concomitant]
     Active Substance: SUCRALFATE
  9. TALTZ [Concomitant]
     Active Substance: IXEKIZUMAB
  10. ASPIRIN 81 [Concomitant]
     Active Substance: ASPIRIN
  11. METOPROLOL SUCCINATE. [Concomitant]
     Active Substance: METOPROLOL SUCCINATE
  12. TRAMADOL. [Concomitant]
     Active Substance: TRAMADOL
  13. AMBRISENTAN [Suspect]
     Active Substance: AMBRISENTAN
     Indication: PULMONARY HYPERTENSION
     Dosage: 10 MG, QD
     Route: 065
  14. LEVOCETIRIZINE [Concomitant]
     Active Substance: LEVOCETIRIZINE
  15. METOPROLOL TARTRATE. [Concomitant]
     Active Substance: METOPROLOL TARTRATE
  16. NITROGLYCERIN. [Concomitant]
     Active Substance: NITROGLYCERIN
  17. SYMBICORT [Concomitant]
     Active Substance: BUDESONIDE\FORMOTEROL FUMARATE DIHYDRATE
  18. ADCIRCA [Concomitant]
     Active Substance: TADALAFIL
  19. AMIODARONE [Concomitant]
     Active Substance: AMIODARONE
  20. HUMALOG [Concomitant]
     Active Substance: INSULIN LISPRO
  21. ATORVASTATIN [Concomitant]
     Active Substance: ATORVASTATIN
  22. BASAGLAR [Concomitant]
     Active Substance: INSULIN GLARGINE
  23. BREO ELLIPTA [Concomitant]
     Active Substance: FLUTICASONE FUROATE\VILANTEROL TRIFENATATE
  24. DULOXETINE. [Concomitant]
     Active Substance: DULOXETINE
  25. KLOR-CON M20 [Concomitant]
     Active Substance: POTASSIUM CHLORIDE
  26. METFORMIN [Concomitant]
     Active Substance: METFORMIN HYDROCHLORIDE
  27. PREDNISONE. [Concomitant]
     Active Substance: PREDNISONE
  28. PROAIR HFA [Concomitant]
     Active Substance: ALBUTEROL SULFATE
  29. TOUJEO [Concomitant]
     Active Substance: INSULIN GLARGINE
  30. UPTRAVI [Concomitant]
     Active Substance: SELEXIPAG
  31. ALBUTEROL SULFATE. [Concomitant]
     Active Substance: ALBUTEROL SULFATE

REACTIONS (7)
  - Oedema [Unknown]
  - Pulmonary hypertension [Unknown]
  - Sepsis [Recovered/Resolved]
  - Chronic respiratory failure [Recovered/Resolved]
  - Renal failure [Recovered/Resolved]
  - Hypoxia [Recovered/Resolved]
  - Mental status changes [Recovered/Resolved]

NARRATIVE: CASE EVENT DATE: 20191206
